FAERS Safety Report 6136027-1 (Version None)
Quarter: 2009Q1

REPORT INFORMATION
  Report Type: 
  Country: None (occurrence: None)
  Receive Date: 20090330
  Receipt Date: 20090316
  Transmission Date: 20090719
  Serious: Yes (Other)
  Sender: FDA-Public Use
  Company Number: ES-JNJFOC-20090305193

PATIENT
  Sex: Female

DRUGS (7)
  1. REMICADE [Suspect]
     Indication: MUSCULOSKELETAL PAIN
  2. STEROIDS [Concomitant]
  3. METHOTREXATE [Concomitant]
  4. NONSTEROIDAL ANTIINFLAMMATORIES [Concomitant]
  5. OMEPRAZOLE [Concomitant]
  6. OPIOID [Concomitant]
  7. ACE INHIBITOR [Concomitant]

REACTIONS (3)
  - CEREBROVASCULAR ACCIDENT [None]
  - DRUG INEFFECTIVE [None]
  - GENERAL SYMPTOM [None]
